FAERS Safety Report 6193247-8 (Version None)
Quarter: 2009Q2

REPORT INFORMATION
  Report Type: 
  Country: None (occurrence: None)
  Receive Date: 20090518
  Receipt Date: 20090511
  Transmission Date: 20091009
  Serious: Yes (Hospitalization)
  Sender: FDA-Public Use
  Company Number: A0784452A

PATIENT
  Sex: Male
  Weight: 97 kg

DRUGS (8)
  1. AVANDIA [Suspect]
     Dosage: 4MG PER DAY
     Route: 065
     Dates: start: 20050101
  2. METFORMIN HCL [Concomitant]
     Dates: start: 20050101
  3. MICARDIS [Concomitant]
     Dates: start: 20050101
  4. TOLTERODINE TARTRATE [Concomitant]
     Dates: start: 20050101
  5. LIPITOR [Concomitant]
     Route: 065
  6. UNOPROST [Concomitant]
  7. INSULIN [Concomitant]
  8. ASPIRIN [Concomitant]
     Dosage: 1TAB PER DAY

REACTIONS (2)
  - ERYSIPELAS [None]
  - PYREXIA [None]
